FAERS Safety Report 11934413 (Version 1)
Quarter: 2016Q1

REPORT INFORMATION
  Report Type: Spontaneous
  Country: US (occurrence: US)
  Receive Date: 20160121
  Receipt Date: 20160121
  Transmission Date: 20160526
  Serious: No
  Sender: FDA-Public Use
  Company Number: US-PERRIGO-15US010233

PATIENT
  Age: 20 Year
  Sex: Male

DRUGS (1)
  1. ACETAMINOPHEN\CAFFEINE\SALICYLATE [Suspect]
     Active Substance: ACETAMINOPHEN\CAFFEINE\SALICYLIC ACID
     Indication: ACCIDENTAL EXPOSURE TO PRODUCT
     Dosage: 4 TABLETS, SINGLE
     Route: 048
     Dates: start: 20150928, end: 20150928

REACTIONS (4)
  - Feeling jittery [Recovered/Resolved]
  - Expired product administered [Recovered/Resolved]
  - Accidental exposure to product [Recovered/Resolved]
  - Nausea [Recovered/Resolved]

NARRATIVE: CASE EVENT DATE: 20150928
